FAERS Safety Report 25042255 (Version 41)
Quarter: 2025Q4

REPORT INFORMATION
  Report Type: Report from Study
  Country: KR (occurrence: KR)
  Receive Date: 20250305
  Receipt Date: 20251212
  Transmission Date: 20260118
  Serious: Yes (Other)
  Sender: JOHNSON AND JOHNSON
  Company Number: KR-JNJFOC-20221153939

PATIENT
  Age: 28 Year
  Sex: Male

DRUGS (18)
  1. TRACLEER [Suspect]
     Active Substance: BOSENTAN
     Indication: Pulmonary hypertension
     Route: 048
  2. TRACLEER [Suspect]
     Active Substance: BOSENTAN
     Indication: Pulmonary arterial hypertension
     Route: 048
  3. SELEXIPAG [Suspect]
     Active Substance: SELEXIPAG
     Indication: Pulmonary arterial hypertension
     Route: 048
  4. SELEXIPAG [Suspect]
     Active Substance: SELEXIPAG
     Indication: Pulmonary hypertension
     Route: 048
  5. SELEXIPAG [Suspect]
     Active Substance: SELEXIPAG
     Route: 048
  6. SELEXIPAG [Suspect]
     Active Substance: SELEXIPAG
     Route: 048
  7. MACITENTAN [Suspect]
     Active Substance: MACITENTAN
     Indication: Pulmonary arterial hypertension
     Route: 048
  8. MACITENTAN [Suspect]
     Active Substance: MACITENTAN
     Indication: Pulmonary hypertension
  9. MOSAPRIDE CITRATE [Suspect]
     Active Substance: MOSAPRIDE CITRATE
     Indication: Product used for unknown indication
  10. LASIX [Suspect]
     Active Substance: FUROSEMIDE
     Indication: Product used for unknown indication
  11. ASPIRIN [Concomitant]
     Active Substance: ASPIRIN
     Indication: Product used for unknown indication
  12. FEBUXOSTAT [Concomitant]
     Active Substance: FEBUXOSTAT
     Indication: Product used for unknown indication
  13. FLUOXETINE HYDROCHLORIDE [Concomitant]
     Active Substance: FLUOXETINE HYDROCHLORIDE
     Indication: Product used for unknown indication
  14. RABEPRAZOLE [Concomitant]
     Active Substance: RABEPRAZOLE
     Indication: Product used for unknown indication
  15. REBAMIPIDE [Concomitant]
     Active Substance: REBAMIPIDE
     Indication: Product used for unknown indication
  16. LOSARTAN POTASSIUM [Concomitant]
     Active Substance: LOSARTAN POTASSIUM
     Indication: Product used for unknown indication
  17. ASPIRIN [Concomitant]
     Active Substance: ASPIRIN
     Indication: Product used for unknown indication
  18. BISOPROLOL FUMARATE [Concomitant]
     Active Substance: BISOPROLOL FUMARATE
     Indication: Product used for unknown indication

REACTIONS (96)
  - Arrhythmia [Not Recovered/Not Resolved]
  - Angioedema [Unknown]
  - Choking [Unknown]
  - Intervertebral disc protrusion [Unknown]
  - Haemoptysis [Unknown]
  - Pulmonary mass [Not Recovered/Not Resolved]
  - Pain [Unknown]
  - Sneezing [Unknown]
  - Sinus tachycardia [Unknown]
  - Chest pain [Unknown]
  - Diarrhoea [Recovered/Resolved]
  - Back pain [Unknown]
  - Gout [Unknown]
  - Chest discomfort [Recovering/Resolving]
  - Joint noise [Unknown]
  - Seborrhoeic dermatitis [Unknown]
  - Insomnia [Unknown]
  - Illness [Unknown]
  - Oesophagitis [Unknown]
  - Lip swelling [Not Recovered/Not Resolved]
  - Spinal osteoarthritis [Unknown]
  - Eye pruritus [Unknown]
  - Oropharyngeal pain [Not Recovered/Not Resolved]
  - Enteritis [Unknown]
  - Paraesthesia [Unknown]
  - Vision blurred [Unknown]
  - Cervicobrachial syndrome [Unknown]
  - Burning sensation [Recovered/Resolved]
  - Haemorrhage [Unknown]
  - Epistaxis [Recovered/Resolved]
  - Muscle atrophy [Unknown]
  - Gastrooesophageal reflux disease [Recovered/Resolved]
  - Gastrooesophageal sphincter insufficiency [Unknown]
  - Abdominal pain upper [Not Recovered/Not Resolved]
  - Nausea [Unknown]
  - Myalgia [Unknown]
  - Gastritis [Recovered/Resolved]
  - Dry mouth [Unknown]
  - Abdominal distension [Unknown]
  - Proteinuria [Unknown]
  - Fatigue [Recovering/Resolving]
  - Bronchitis [Unknown]
  - Axillary pain [Unknown]
  - Feeling hot [Recovering/Resolving]
  - Epigastric discomfort [Unknown]
  - Anxiety [Unknown]
  - Respiratory tract congestion [Unknown]
  - Frustration tolerance decreased [Unknown]
  - Arthralgia [Not Recovered/Not Resolved]
  - Urticaria [Unknown]
  - Dizziness [Unknown]
  - Eructation [Unknown]
  - Flatulence [Unknown]
  - Dyspnoea [Recovering/Resolving]
  - Accident [Unknown]
  - Migraine [Unknown]
  - Dizziness [Recovered/Resolved]
  - Nasopharyngitis [Unknown]
  - Headache [Not Recovered/Not Resolved]
  - Asthenia [Unknown]
  - Throat irritation [Recovered/Resolved]
  - Dyspepsia [Recovered/Resolved]
  - Haemoglobin increased [Unknown]
  - Vomiting [Unknown]
  - Lip dry [Unknown]
  - Cough [Unknown]
  - Paraesthesia [Unknown]
  - Pain in extremity [Unknown]
  - Cyanosis [Recovering/Resolving]
  - Pain in jaw [Recovered/Resolved]
  - Palpitations [Not Recovered/Not Resolved]
  - Anal fissure [Unknown]
  - Hepatic enzyme increased [Unknown]
  - Muscle twitching [Unknown]
  - Alopecia [Unknown]
  - Ear pain [Recovering/Resolving]
  - Treatment noncompliance [Unknown]
  - Head discomfort [Recovered/Resolved]
  - Productive cough [Not Recovered/Not Resolved]
  - Pollakiuria [Not Recovered/Not Resolved]
  - Decreased appetite [Unknown]
  - Cardiomegaly [Unknown]
  - Tooth disorder [Unknown]
  - Skin laceration [Unknown]
  - Gastrooesophageal reflux disease [Not Recovered/Not Resolved]
  - Musculoskeletal stiffness [Recovered/Resolved]
  - Gastritis [Unknown]
  - Nausea [Recovered/Resolved]
  - Muscular weakness [Unknown]
  - Musculoskeletal chest pain [Unknown]
  - Swelling [Unknown]
  - Oedema peripheral [Unknown]
  - Cardiac disorder [Unknown]
  - Gastrointestinal disorder [Unknown]
  - Abdominal pain lower [Unknown]
  - Paraesthesia [Unknown]

NARRATIVE: CASE EVENT DATE: 20210401
